FAERS Safety Report 7544490-4 (Version None)
Quarter: 2011Q2

REPORT INFORMATION
  Report Type: 
  Country: None (occurrence: None)
  Receive Date: 20110613
  Receipt Date: 20100903
  Transmission Date: 20111010
  Serious: Yes (Hospitalization, Disabling, Other)
  Sender: FDA-Public Use
  Company Number: PHHY2009JP44235

PATIENT
  Sex: Male
  Weight: 61 kg

DRUGS (17)
  1. PRIMOBOLAN [Concomitant]
     Dosage: 30 MG, UNK
     Route: 048
  2. AMARYL [Concomitant]
     Indication: DIABETES MELLITUS
     Route: 048
     Dates: start: 20090224, end: 20090921
  3. HUMULIN R [Concomitant]
     Dosage: 22 DF, UNK
     Dates: start: 20090928
  4. EXJADE [Suspect]
     Dosage: 1250 MG DAILY
     Route: 048
     Dates: start: 20090323, end: 20090705
  5. EXJADE [Suspect]
     Indication: IRON OVERLOAD
     Dosage: 625 MG, DAILY
     Route: 048
     Dates: start: 20081007, end: 20081020
  6. EXJADE [Suspect]
     Dosage: 1250 MG DAILY
     Route: 048
     Dates: start: 20081021, end: 20090126
  7. EXJADE [Suspect]
     Dosage: 625 MG DAILY
     Route: 048
     Dates: start: 20090223, end: 20090322
  8. PRIMOBOLAN [Concomitant]
     Indication: MYELODYSPLASTIC SYNDROME
     Dosage: 30 MG, UNK
     Route: 048
     Dates: start: 20040702
  9. RED BLOOD CELLS, CONCENTRATED [Concomitant]
     Dosage: 2 UNITS (EVERY 3 WEEKS)
     Dates: start: 20040116, end: 20041227
  10. DESFERAL [Concomitant]
     Indication: IRON OVERLOAD
     Dosage: 500 MG, UNK
     Route: 030
     Dates: start: 20040828, end: 20080926
  11. BASEN [Concomitant]
     Indication: DIABETES MELLITUS
     Dosage: 0.9 MG, UNK
     Route: 048
     Dates: start: 20090315, end: 20090406
  12. RED BLOOD CELLS, LEUCOCYTE DEPLETED [Concomitant]
     Dosage: 2 UNITS (EVERY 1.5 WEEKS)
     Dates: start: 20081008
  13. HUMULIN R [Concomitant]
     Indication: DIABETES MELLITUS
     Dosage: 24 DF, UNK
     Route: 042
     Dates: start: 20090407, end: 20090401
  14. RED BLOOD CELLS, CONCENTRATED [Concomitant]
     Dosage: 2 UNITS (EVERY 2 WEEKS)
     Dates: start: 20050117, end: 20051229
  15. PRAVASTATIN SODIUM [Concomitant]
     Indication: HYPERLIPIDAEMIA
     Dosage: 20 MG, UNK
     Route: 048
     Dates: start: 20080412, end: 20090423
  16. HUMALOG [Concomitant]
     Indication: DIABETES MELLITUS
     Dosage: 28 DF, UNK
     Route: 042
     Dates: start: 20090416, end: 20090921
  17. EXJADE [Suspect]
     Dosage: 1500 MG, DAILY
     Route: 048
     Dates: start: 20090705, end: 20090928

REACTIONS (13)
  - PYREXIA [None]
  - CARDIAC NEOPLASM UNSPECIFIED [None]
  - ASPARTATE AMINOTRANSFERASE INCREASED [None]
  - CARDIAC FAILURE CONGESTIVE [None]
  - CARDIOMYOPATHY [None]
  - HEPATIC CONGESTION [None]
  - BLOOD LACTATE DEHYDROGENASE INCREASED [None]
  - INTRACARDIAC THROMBUS [None]
  - DYSPNOEA EXERTIONAL [None]
  - ALANINE AMINOTRANSFERASE INCREASED [None]
  - BLOOD BILIRUBIN INCREASED [None]
  - OEDEMA PERIPHERAL [None]
  - GAMMA-GLUTAMYLTRANSFERASE INCREASED [None]
